FAERS Safety Report 8448382-8 (Version None)
Quarter: 2012Q2

REPORT INFORMATION
  Report Type: 
  Country: None (occurrence: None)
  Receive Date: 20120612
  Receipt Date: 20120530
  Transmission Date: 20120825
  Serious: No
  Sender: FDA-Public Use
  Company Number: FABR-11486

PATIENT
  Age: 16 Year
  Sex: Male
  Weight: 39 kg

DRUGS (5)
  1. HYDROXYZINE PAMOATE [Concomitant]
  2. METHYLPREDNISOLONE [Concomitant]
  3. CARBAMAZEPINE [Concomitant]
  4. CHLORPHENIRAMINE MALEATE [Concomitant]
  5. FABRAZYME [Suspect]
     Indication: FABRY'S DISEASE
     Dosage: 40 MG, Q2W, INTRAVENOUS
     Route: 042
     Dates: start: 20051102

REACTIONS (6)
  - NASAL CONGESTION [None]
  - HEADACHE [None]
  - NAUSEA [None]
  - FLUSHING [None]
  - INFUSION RELATED REACTION [None]
  - DYSPNOEA [None]
